FAERS Safety Report 5853424-X (Version None)
Quarter: 2008Q3

REPORT INFORMATION
  Report Type: 
  Country: None (occurrence: None)
  Receive Date: 20080821
  Receipt Date: 20080811
  Transmission Date: 20090109
  Serious: Yes (Disabling, Other)
  Sender: FDA-Public Use
  Company Number: GB-PFIZER INC-2008068443

PATIENT
  Sex: Female

DRUGS (5)
  1. CHANTIX [Suspect]
     Route: 048
     Dates: start: 20080423, end: 20080604
  2. EPILIM [Concomitant]
     Route: 048
  3. QUETIAPINE [Concomitant]
  4. SYMBICORT [Concomitant]
     Route: 055
  5. VENTOLIN [Concomitant]
     Route: 055

REACTIONS (3)
  - ANGINA PECTORIS [None]
  - DYSPHONIA [None]
  - MOOD ALTERED [None]
